FAERS Safety Report 4983622-9 (Version None)
Quarter: 2006Q2

REPORT INFORMATION
  Report Type: 
  Country: None (occurrence: None)
  Receive Date: 20060425
  Receipt Date: 20060425
  Transmission Date: 20061013
  Serious: Yes (Hospitalization)
  Sender: FDA-Public Use
  Company Number: None

PATIENT
  Sex: Male
  Weight: 76.6579 kg

DRUGS (15)
  1. HYDROCHLOROTHIAZIDE [Suspect]
     Indication: HYPERTENSION
  2. ATENOLOL [Suspect]
     Indication: HYPERTENSION
  3. FELODIPINE [Suspect]
  4. ..... [Concomitant]
  5. .... [Concomitant]
  6. .... [Concomitant]
  7. ... [Concomitant]
  8. .... [Concomitant]
  9. .... [Concomitant]
  10. .... [Concomitant]
  11. .... [Concomitant]
  12. .... [Concomitant]
  13. .... [Concomitant]
  14. .... [Concomitant]
  15. .... [Concomitant]

REACTIONS (2)
  - HYPONATRAEMIA [None]
  - HYPOTENSION [None]
